FAERS Safety Report 18589501 (Version 1)
Quarter: 2020Q4

REPORT INFORMATION
  Report Type: Spontaneous
  Country: CA (occurrence: CA)
  Receive Date: 20201208
  Receipt Date: 20201208
  Transmission Date: 20210114
  Serious: Yes (Other)
  Sender: FDA-Public Use
  Company Number: CA-LUPIN PHARMACEUTICALS INC.-2020-09960

PATIENT
  Sex: Male

DRUGS (2)
  1. NORMAL SALINE [Concomitant]
     Active Substance: SODIUM CHLORIDE
     Indication: PRODUCT USED FOR UNKNOWN INDICATION
     Dosage: UNK
     Route: 065
  2. TRIAMCINOLONE ACETONIDE. [Suspect]
     Active Substance: TRIAMCINOLONE ACETONIDE
     Indication: STENOSIS OF VESICOURETHRAL ANASTOMOSIS
     Dosage: UNK-TREATED WITH TRIAMCINOLONE 4 MG/ML INJECTION FOLLOWING TRANSURETHRAL BLADDER NECK INCISION AT TH
     Route: 065

REACTIONS (1)
  - Urinary retention postoperative [Recovered/Resolved]
